FAERS Safety Report 6019805-9 (Version None)
Quarter: 2008Q4

REPORT INFORMATION
  Report Type: 
  Country: None (occurrence: None)
  Receive Date: 20081224
  Receipt Date: 20081224
  Transmission Date: 20090506
  Serious: Yes (Other)
  Sender: FDA-Public Use
  Company Number: IR-B.I. PHARMACEUTICALS,INC./RIDGEFIELD-2008-DE-07758GD

PATIENT
  Sex: Male

DRUGS (2)
  1. CLONIDINE [Suspect]
     Indication: ATTENTION DEFICIT/HYPERACTIVITY DISORDER
     Dosage: 0.1 MG (ON SOME DAYS 0.2 MG WERE ADMINISTERED)
  2. METHYLPHENIDATE HCL [Suspect]
     Indication: ATTENTION DEFICIT/HYPERACTIVITY DISORDER
     Dosage: 20MG

REACTIONS (4)
  - ANXIETY [None]
  - DEPRESSION [None]
  - INSOMNIA [None]
  - SLEEP TERROR [None]
